FAERS Safety Report 4943650-6 (Version None)
Quarter: 2006Q1

REPORT INFORMATION
  Report Type: 
  Country: None (occurrence: None)
  Receive Date: 20060310
  Receipt Date: 20060307
  Transmission Date: 20060701
  Serious: Yes (Death, Life-Threatening, Hospitalization, Disabling)
  Sender: FDA-Public Use
  Company Number: 2006MP000146

PATIENT
  Age: 84 Year
  Sex: Male

DRUGS (13)
  1. AGGRASTAT [Suspect]
     Indication: ANGINA UNSTABLE
     Dosage: 0.05 UG/KG/MIN;IV
     Route: 042
     Dates: start: 20060101, end: 20060102
  2. AGGRASTAT [Suspect]
     Indication: ANGINA UNSTABLE
     Dosage: 0.2 MG/KG/MIN;IV
     Route: 042
     Dates: start: 20051231, end: 20051231
  3. ACETYLSCYSTEINE [Concomitant]
  4. BISOPROLOL FUMARATE [Concomitant]
  5. FUROSEMIDE [Concomitant]
  6. GLICLAZIDE [Concomitant]
  7. HYDROCHLOROTHIAZIDE [Concomitant]
  8. IRBESARTAN [Concomitant]
  9. ENOXAPARIN SODIUM [Suspect]
     Indication: ANGINA UNSTABLE
     Dosage: 80 MG; QD; SC
     Route: 058
     Dates: start: 20051231, end: 20051231
  10. ENOXAPARIN SODIUM [Suspect]
     Indication: ANGINA UNSTABLE
     Dosage: 40 MG; BID;SC
     Route: 058
     Dates: start: 20060101, end: 20060102
  11. ASPIRIN [Suspect]
     Indication: ANGINA UNSTABLE
     Dosage: 160 MG;QD;PO
     Route: 048
     Dates: start: 20051231, end: 20060101
  12. ASPIRIN [Suspect]
     Indication: ANGINA UNSTABLE
     Dosage: 80 MG;QD;PO
     Route: 048
     Dates: start: 20060102, end: 20060102
  13. MOLSIDOMINE [Concomitant]

REACTIONS (3)
  - CORONARY ARTERY STENOSIS [None]
  - POST PROCEDURAL HAEMORRHAGE [None]
  - RENAL FAILURE [None]
